FAERS Safety Report 13414368 (Version 3)
Quarter: 2017Q2

REPORT INFORMATION
  Report Type: Report from Study
  Country: US (occurrence: US)
  Receive Date: 20170406
  Receipt Date: 20170512
  Transmission Date: 20170830
  Serious: Yes (Hospitalization, Other)
  Sender: FDA-Public Use
  Company Number: US-GILEAD-2017-0266166

PATIENT
  Age: 61 Year
  Sex: Male

DRUGS (1)
  1. AMBRISENTAN [Suspect]
     Active Substance: AMBRISENTAN
     Indication: PRODUCT USED FOR UNKNOWN INDICATION
     Dosage: 10 MG, QD
     Route: 065
     Dates: start: 20131107

REACTIONS (13)
  - Sinus disorder [Unknown]
  - Back pain [Unknown]
  - Poor quality sleep [Unknown]
  - Asthenia [Unknown]
  - Unevaluable event [Unknown]
  - Chest pain [Unknown]
  - Upper-airway cough syndrome [Not Recovered/Not Resolved]
  - Sputum discoloured [Unknown]
  - Productive cough [Unknown]
  - Dyspnoea [Unknown]
  - Catheterisation cardiac [Unknown]
  - Lower respiratory tract congestion [Unknown]
  - Dizziness [Unknown]
